FAERS Safety Report 8774922 (Version 1)
Quarter: 2012Q4

REPORT INFORMATION
  Report Type: 
  Country: US (occurrence: US)
  Receive Date: 20120910
  Receipt Date: 20120910
  Transmission Date: 20130627
  Serious: Yes (Hospitalization)
  Sender: FDA-Public Use
  Company Number: US-PERRIGO-12US007685

PATIENT
  Age: 27 Year
  Sex: Female

DRUGS (5)
  1. IBUPROFEN [Suspect]
     Indication: SUICIDE ATTEMPT
     Dosage: Unknown, Unknown
     Route: 048
  2. NAPROXEN [Suspect]
     Indication: SUICIDE ATTEMPT
     Dosage: Unknown, Unknown
     Route: 048
  3. WARFARIN [Suspect]
     Indication: SUICIDE ATTEMPT
     Dosage: Unknown, Unknown
     Route: 048
  4. NORTRIPTYLINE [Suspect]
     Indication: SUICIDE ATTEMPT
     Dosage: Unknown, Unknown
     Route: 048
  5. OXYCODONE AND ACETAMINOPHEN [Suspect]
     Indication: SUICIDE ATTEMPT
     Dosage: Unknown, Unknown
     Route: 048

REACTIONS (6)
  - International normalised ratio increased [Recovered/Resolved]
  - Overdose [Recovered/Resolved]
  - Sedation [Unknown]
  - Miosis [Unknown]
  - Tachycardia [Unknown]
  - Gastrointestinal sounds abnormal [Unknown]
